FAERS Safety Report 5599994-0 (Version None)
Quarter: 2008Q1

REPORT INFORMATION
  Report Type: 
  Country: None (occurrence: None)
  Receive Date: 20080118
  Receipt Date: 20080103
  Transmission Date: 20080703
  Serious: Yes (Hospitalization)
  Sender: FDA-Public Use
  Company Number: ALK_0083_2006

PATIENT
  Age: 43 Year
  Sex: Female

DRUGS (1)
  1. VIVITROL [Suspect]
     Indication: ALCOHOLISM
     Dosage: (380 MG 1X INTRAMUSCULAR
     Route: 030
     Dates: start: 20061010, end: 20061010

REACTIONS (2)
  - ABSCESS [None]
  - NECROSIS [None]
